FAERS Safety Report 5489131-5 (Version None)
Quarter: 2007Q4

REPORT INFORMATION
  Report Type: 
  Country: None (occurrence: None)
  Receive Date: 20071005
  Receipt Date: 20070831
  Transmission Date: 20080405
  Serious: Yes (Other)
  Sender: FDA-Public Use
  Company Number: PHEH2007US11222

PATIENT
  Age: 72 Year
  Sex: Male
  Weight: 106.1 kg

DRUGS (7)
  1. TEKTURNA [Suspect]
     Indication: HYPERTENSION
     Dosage: 150 MG, QD, ORAL
     Route: 048
     Dates: start: 20070419, end: 20070720
  2. DIOVAN [Suspect]
     Indication: HYPERTENSION
     Dosage: 320 MG, QD, ORAL
     Route: 048
     Dates: end: 20070801
  3. VYTORIN [Concomitant]
  4. PRIMIDONE [Concomitant]
  5. GLIPIZIDE [Concomitant]
  6. LOPID [Concomitant]
  7. ANGIOTENSIN II ANTAGONISTS (NO INGREDIENTS/SUBSTANCES) [Concomitant]

REACTIONS (7)
  - BLOOD CREATININE INCREASED [None]
  - BLOOD POTASSIUM INCREASED [None]
  - BLOOD PRESSURE INCREASED [None]
  - BRADYCARDIA [None]
  - HEADACHE [None]
  - HYPERKALAEMIA [None]
  - TINNITUS [None]
